FAERS Safety Report 11159937 (Version 1)
Quarter: 2015Q2

REPORT INFORMATION
  Report Type: Report from Study
  Country: IL (occurrence: IL)
  Receive Date: 20150603
  Receipt Date: 20150603
  Transmission Date: 20150821
  Serious: Yes (Other)
  Sender: FDA-Public Use
  Company Number: PHHY2015IL064730

PATIENT
  Sex: Male
  Weight: 53 kg

DRUGS (1)
  1. EXJADE [Suspect]
     Active Substance: DEFERASIROX
     Indication: THALASSAEMIA BETA
     Dosage: 2000 MG, QD
     Route: 048
     Dates: start: 20070101

REACTIONS (3)
  - Growth retardation [Unknown]
  - Insulin-like growth factor decreased [Unknown]
  - Growth hormone deficiency [Unknown]
